FAERS Safety Report 5861666-2 (Version None)
Quarter: 2008Q3

REPORT INFORMATION
  Report Type: 
  Country: None (occurrence: None)
  Receive Date: 20080826
  Receipt Date: 20080812
  Transmission Date: 20090109
  Serious: No
  Sender: FDA-Public Use
  Company Number: C-08-0030-W

PATIENT

DRUGS (1)
  1. KETOROLAC TROMETHAMINE [Suspect]

REACTIONS (2)
  - DRUG INEFFECTIVE [None]
  - TREATMENT FAILURE [None]
